FAERS Safety Report 6258224 (Version 7)
Quarter: 2015Q1

REPORT INFORMATION
  Report Type: Report from Study
  Country: FR (occurrence: FR)
  Receive Date: 20060309
  Receipt Date: 20150206
  Transmission Date: 20150721
  Serious: Yes (Death, Life-Threatening, Hospitalization)
  Sender: FDA-Public Use
  Company Number: FR-PFIZER INC-2006029505

PATIENT
  Age: 68 Year
  Sex: Male
  Weight: 69 kg

DRUGS (10)
  1. LACTULOSE. [Concomitant]
     Active Substance: LACTULOSE
     Dosage: AS NEEDED
     Route: 048
     Dates: start: 200510
  2. GINKGO EXTRACT\HEPTAMINOL\TROXERUTIN [Concomitant]
     Active Substance: GINKGO\HEPTAMINOL\TROXERUTIN
     Dosage: UNK
     Route: 048
     Dates: start: 2005
  3. SUNITINIB MALATE [Suspect]
     Active Substance: SUNITINIB MALATE
     Indication: HEPATIC CANCER
     Dosage: 50 MG, 1X/DAY, 4 WEEKS
     Route: 048
     Dates: start: 20060217, end: 20060224
  4. DIFFU K [Concomitant]
     Active Substance: POTASSIUM CHLORIDE
     Dosage: UNK
     Route: 048
  5. TRASICOR [Concomitant]
     Active Substance: OXPRENOLOL HYDROCHLORIDE
     Dosage: UNK
     Route: 048
     Dates: start: 1991
  6. ALDACTONE [Concomitant]
     Active Substance: SPIRONOLACTONE
     Dosage: UNK
     Route: 048
     Dates: start: 200508
  7. ZOCOR [Concomitant]
     Active Substance: SIMVASTATIN
     Dosage: UNK
     Route: 048
     Dates: start: 1991
  8. XATRAL [Concomitant]
     Active Substance: ALFUZOSIN
     Dosage: UNK
     Route: 048
     Dates: start: 200510
  9. METFORMIN [Concomitant]
     Active Substance: METFORMIN HYDROCHLORIDE
     Dosage: UNK
     Route: 048
     Dates: start: 2004
  10. PERMIXON [Concomitant]
     Active Substance: SAW PALMETTO
     Dosage: UNK
     Route: 048
     Dates: start: 200510

REACTIONS (5)
  - Aphasia [Unknown]
  - Somnolence [Unknown]
  - Hepatic encephalopathy [Fatal]
  - Balance disorder [Unknown]
  - Neurological decompensation [Unknown]

NARRATIVE: CASE EVENT DATE: 20060224
